FAERS Safety Report 10084763 (Version 2)
Quarter: 2014Q2

REPORT INFORMATION
  Report Type: Spontaneous
  Country: US (occurrence: US)
  Receive Date: 20140417
  Receipt Date: 20140527
  Transmission Date: 20141212
  Serious: No
  Sender: FDA-Public Use
  Company Number: US-B.I. PHARMACEUTICALS,INC./RIDGEFIELD-2014-BI-15871BP

PATIENT
  Age: 79 Year
  Sex: Male
  Weight: 100 kg

DRUGS (7)
  1. COMBIVENT [Suspect]
     Indication: EMPHYSEMA
     Dosage: DOSE PER APPLICATION:: 20 MCG / 100 MCG; DAILY DOSE: 80 MCG/400 MCG
     Route: 055
     Dates: start: 201403
  2. LIPITOR [Concomitant]
     Indication: CARDIAC DISORDER
     Route: 048
     Dates: start: 2011
  3. PLAVIX [Concomitant]
     Indication: CARDIAC DISORDER
     Route: 048
     Dates: start: 2011
  4. BISOPROLOL [Concomitant]
     Indication: HYPERTENSION
     Route: 048
     Dates: start: 2011
  5. PRILOSEC [Concomitant]
     Indication: GASTROOESOPHAGEAL REFLUX DISEASE
     Route: 048
  6. TERAZOSIN [Concomitant]
     Indication: PROSTATOMEGALY
     Route: 048
  7. NITROSTAT [Concomitant]
     Indication: CARDIAC DISORDER
     Route: 050
     Dates: start: 2011

REACTIONS (3)
  - Retching [Not Recovered/Not Resolved]
  - Cough [Not Recovered/Not Resolved]
  - Choking [Not Recovered/Not Resolved]
